FAERS Safety Report 12604372 (Version 1)
Quarter: 2016Q3

REPORT INFORMATION
  Report Type: Spontaneous
  Country: US (occurrence: US)
  Receive Date: 20160728
  Receipt Date: 20160728
  Transmission Date: 20161109
  Serious: Yes (Death)
  Sender: FDA-Public Use
  Company Number: US-BAYER-2010-002796

PATIENT
  Sex: Female

DRUGS (1)
  1. CHLORPHENIRAMINE MALEATE+PSEUDOEPHEDRINE SULFATE+PARACETAMOL [Suspect]
     Active Substance: ACETAMINOPHEN\CHLORPHENIRAMINE MALEATE\PSEUDOEPHEDRINE SULFATE

REACTIONS (1)
  - Cerebrovascular accident [Fatal]
